FAERS Safety Report 6470764-4 (Version None)
Quarter: 2009Q4

REPORT INFORMATION
  Report Type: 
  Country: None (occurrence: None)
  Receive Date: 20091203
  Receipt Date: 20091130
  Transmission Date: 20100525
  Serious: Yes (Hospitalization)
  Sender: FDA-Public Use
  Company Number: B0604156A

PATIENT
  Sex: Female

DRUGS (1)
  1. ARIXTRA [Suspect]
     Indication: ATRIAL FIBRILLATION
     Route: 058
     Dates: start: 20090921, end: 20091008

REACTIONS (5)
  - ANAEMIA [None]
  - HAEMATOMA [None]
  - MELAENA [None]
  - OFF LABEL USE [None]
  - POST PROCEDURAL HAEMORRHAGE [None]
